FAERS Safety Report 10176826 (Version 3)
Quarter: 2014Q2

REPORT INFORMATION
  Report Type: Report from Study
  Country: FR (occurrence: FR)
  Receive Date: 20140516
  Receipt Date: 20140602
  Transmission Date: 20141212
  Serious: Yes (Death, Hospitalization)
  Sender: FDA-Public Use
  Company Number: FR-CELGENEUS-056-21660-14043635

PATIENT
  Age: 62 Year
  Sex: Male

DRUGS (5)
  1. ABRAXANE [Suspect]
     Indication: PANCREATIC CARCINOMA METASTATIC
     Route: 041
     Dates: start: 20140313, end: 20140412
  2. 5-FLUOROURACIL [Suspect]
     Indication: PANCREATIC CARCINOMA METASTATIC
     Route: 065
     Dates: start: 20140313, end: 20140412
  3. 5-FLUOROURACIL [Suspect]
     Dosage: CONTINUOUS
     Route: 065
     Dates: start: 20140313, end: 20140412
  4. FOLINIC ACID [Suspect]
     Indication: PANCREATIC CARCINOMA METASTATIC
     Route: 065
     Dates: start: 20140313, end: 20140412
  5. RED BLOOD CELLS [Concomitant]
     Indication: PRODUCT USED FOR UNKNOWN INDICATION
     Route: 041
     Dates: start: 20140412, end: 20140412

REACTIONS (2)
  - Respiratory tract infection [Fatal]
  - Weight decreased [Not Recovered/Not Resolved]
